FAERS Safety Report 8174922-2 (Version None)
Quarter: 2012Q1

REPORT INFORMATION
  Report Type: 
  Country: None (occurrence: None)
  Receive Date: 20120229
  Receipt Date: 20110811
  Transmission Date: 20120608
  Serious: No
  Sender: FDA-Public Use
  Company Number: US-GLAXOSMITHKLINE-A0940520A

PATIENT
  Age: 59 Year
  Sex: Female

DRUGS (2)
  1. VALTREX [Suspect]
     Indication: RASH
     Dosage: 1CAPL PER DAY
     Route: 048
     Dates: start: 20110704, end: 20110710
  2. NO CONCURRENT MEDICATION [Concomitant]

REACTIONS (8)
  - ABDOMINAL PAIN [None]
  - DISORIENTATION [None]
  - DRUG INEFFECTIVE [None]
  - SKIN TIGHTNESS [None]
  - FEELING DRUNK [None]
  - CHILLS [None]
  - ABDOMINAL DISTENSION [None]
  - FUNGAL INFECTION [None]
